FAERS Safety Report 19298149 (Version 1)
Quarter: 2021Q2

REPORT INFORMATION
  Report Type: Spontaneous
  Country: JP (occurrence: JP)
  Receive Date: 20210524
  Receipt Date: 20210524
  Transmission Date: 20210717
  Serious: Yes (Life-Threatening, Hospitalization)
  Sender: FDA-Public Use
  Company Number: JP-ASTRAZENECA-2021A452493

PATIENT
  Sex: Male

DRUGS (4)
  1. OTHER ANTITUMOR AGENTS [Concomitant]
     Active Substance: UNSPECIFIED INGREDIENT
     Indication: SMALL CELL LUNG CANCER
     Dosage: DOSE UNKNOWN
     Route: 065
  2. IMFINZI [Suspect]
     Active Substance: DURVALUMAB
     Indication: SMALL CELL LUNG CANCER
     Route: 041
  3. IMFINZI [Suspect]
     Active Substance: DURVALUMAB
     Indication: SMALL CELL LUNG CANCER
     Route: 041
  4. ETOPOSIDE. [Concomitant]
     Active Substance: ETOPOSIDE
     Indication: SMALL CELL LUNG CANCER
     Dosage: DOSE UNKNOWN, ON DAY 1, 2, AND 3 OF EACH CYCLE
     Route: 041

REACTIONS (3)
  - Interstitial lung disease [Recovered/Resolved]
  - Loss of consciousness [Recovered/Resolved]
  - Cardiac arrest [Recovered/Resolved]
